FAERS Safety Report 7410574-4 (Version None)
Quarter: 2011Q2

REPORT INFORMATION
  Report Type: 
  Country: None (occurrence: None)
  Receive Date: 20110413
  Receipt Date: 20110405
  Transmission Date: 20111010
  Serious: No
  Sender: FDA-Public Use
  Company Number: US-BIOGENIDEC-2011BI013005

PATIENT
  Age: 44 Year
  Sex: Female

DRUGS (3)
  1. TYSABRI [Suspect]
     Route: 042
     Dates: start: 20070228, end: 20110214
  2. TYSABRI [Suspect]
     Indication: MULTIPLE SCLEROSIS
     Route: 042
     Dates: start: 20070201
  3. TYSABRI [Suspect]
     Route: 042
     Dates: start: 20040826, end: 20060822

REACTIONS (3)
  - MULTIPLE SCLEROSIS [None]
  - MOBILITY DECREASED [None]
  - ARTHRALGIA [None]
